FAERS Safety Report 17758572 (Version 2)
Quarter: 2021Q2

REPORT INFORMATION
  Report Type: Spontaneous
  Country: US (occurrence: US)
  Receive Date: 20200507
  Receipt Date: 20210627
  Transmission Date: 20210716
  Serious: No
  Sender: FDA-Public Use
  Company Number: US-BRISTOL-MYERS SQUIBB COMPANY-BMS-2020-036594

PATIENT
  Age: 45 Year
  Sex: Female
  Weight: 81.63 kg

DRUGS (4)
  1. LYRICA [Concomitant]
     Active Substance: PREGABALIN
     Indication: PAIN
     Dosage: 7.5 MILLIGRAM, BID
     Route: 065
  2. ROSUVASTATIN IC [Concomitant]
     Indication: BLOOD CHOLESTEROL
     Dosage: 5 MILLIGRAM, QD
     Route: 065
  3. BUSPIRONE [Concomitant]
     Active Substance: BUSPIRONE HYDROCHLORIDE
     Indication: ANXIETY
     Dosage: 7.5 MILLIGRAM, BID
     Route: 065
  4. ELIQUIS [Suspect]
     Active Substance: APIXABAN
     Indication: BLOOD PRESSURE MEASUREMENT
     Dosage: 5 MILLIGRAM, BID
     Route: 065

REACTIONS (2)
  - Hypoacusis [Recovered/Resolved]
  - Intentional product use issue [Unknown]
